FAERS Safety Report 7475630-3 (Version None)
Quarter: 2011Q2

REPORT INFORMATION
  Report Type: 
  Country: None (occurrence: None)
  Receive Date: 20110504
  Receipt Date: 20110420
  Transmission Date: 20111010
  Serious: Yes (Hospitalization)
  Sender: FDA-Public Use
  Company Number: 900740

PATIENT
  Age: 31 Year
  Sex: Female

DRUGS (9)
  1. ACYCLOVIR [Suspect]
     Indication: HERPES ZOSTER
     Dosage: 10 MG/KG MILLIGRAMS(S)/KILOGRAM, (1 DAY)
     Dates: start: 20110401
  2. LEVOTHYROXINE SODIUM [Concomitant]
  3. INSULIN GLARGINE [Concomitant]
  4. METFORMIN HCL [Concomitant]
  5. CAMPATH [Suspect]
     Indication: MULTIPLE SCLEROSIS
     Dosage: 12 MG MILLIGRAM(S), INTRAVENOUS
     Route: 042
     Dates: start: 20110328, end: 20110331
  6. CEPHALEXIN [Suspect]
     Indication: INFECTION
     Dates: start: 20110331
  7. NOVORAPID [Concomitant]
  8. SIMVASTATIN [Concomitant]
  9. GLICLAZIDE [Concomitant]

REACTIONS (3)
  - HERPES ZOSTER [None]
  - ALANINE AMINOTRANSFERASE INCREASED [None]
  - LIVER FUNCTION TEST ABNORMAL [None]
